FAERS Safety Report 9834659 (Version 2)
Quarter: 2014Q1

REPORT INFORMATION
  Report Type: Spontaneous
  Country: DE (occurrence: DE)
  Receive Date: 20140122
  Receipt Date: 20140122
  Transmission Date: 20141002
  Serious: Yes (Other)
  Sender: FDA-Public Use
  Company Number: DE-UCBSA-105288

PATIENT
  Age: 72 Year
  Sex: Male

DRUGS (4)
  1. NEUPRO [Suspect]
     Indication: RESTLESS LEGS SYNDROME
     Dosage: 2 MG
  2. NEUPRO [Suspect]
     Indication: RESTLESS LEGS SYNDROME
     Dosage: 4 MG
  3. NEUPRO [Suspect]
     Indication: RESTLESS LEGS SYNDROME
     Dosage: STRENGTH: 8 MG
     Dates: start: 2009
  4. RESTEX [Concomitant]

REACTIONS (7)
  - Arrhythmia [Recovered/Resolved]
  - Haemorrhage [Recovered/Resolved]
  - Road traffic accident [Recovered/Resolved]
  - Fatigue [Recovered/Resolved]
  - Somnolence [Recovered/Resolved]
  - Overdose [Recovered/Resolved]
  - Drug dose omission [Unknown]
